FAERS Safety Report 5818764-9 (Version None)
Quarter: 2008Q3

REPORT INFORMATION
  Report Type: 
  Country: None (occurrence: None)
  Receive Date: 20080721
  Receipt Date: 20080721
  Transmission Date: 20090109
  Serious: Yes (Other)
  Sender: FDA-Public Use
  Company Number: None

PATIENT
  Sex: Female
  Weight: 83.63 kg

DRUGS (1)
  1. TAXOL [Suspect]

REACTIONS (4)
  - CHEST DISCOMFORT [None]
  - FLUSHING [None]
  - LIP SWELLING [None]
  - NASAL DISCOMFORT [None]
